FAERS Safety Report 4423394-X (Version None)
Quarter: 2004Q3

REPORT INFORMATION
  Report Type: 
  Country: None (occurrence: None)
  Receive Date: 20040811
  Receipt Date: 20040805
  Transmission Date: 20050211
  Serious: Yes (Other)
  Sender: FDA-Public Use
  Company Number: PHBS2004JP10480

PATIENT
  Age: 64 Year
  Sex: Female

DRUGS (1)
  1. DIOVAN [Suspect]
     Dosage: 80 MG, QD
     Route: 048
     Dates: start: 20030101, end: 20040805

REACTIONS (1)
  - PYREXIA [None]
